FAERS Safety Report 7864640-X (Version None)
Quarter: 2011Q4

REPORT INFORMATION
  Report Type: 
  Country: None (occurrence: None)
  Receive Date: 20111028
  Receipt Date: 20111026
  Transmission Date: 20120403
  Serious: No
  Sender: FDA-Public Use
  Company Number: US-TEVA-306746USA

PATIENT
  Sex: Female

DRUGS (3)
  1. ENTACAPONE [Concomitant]
  2. AZILECT [Suspect]
     Indication: PARKINSON'S DISEASE
     Route: 048
     Dates: start: 20090101
  3. SINEMET [Concomitant]

REACTIONS (3)
  - URTICARIA [None]
  - URINARY TRACT INFECTION [None]
  - PRURITUS GENERALISED [None]
